FAERS Safety Report 15769578 (Version 3)
Quarter: 2019Q1

REPORT INFORMATION
  Report Type: Spontaneous
  Country: DE (occurrence: DE)
  Receive Date: 20181228
  Receipt Date: 20190225
  Transmission Date: 20190417
  Serious: Yes (Hospitalization, Other)
  Sender: FDA-Public Use
  Company Number: DE-ACCORD-098219

PATIENT
  Sex: Male

DRUGS (5)
  1. TACROLIMUS. [Suspect]
     Active Substance: TACROLIMUS
     Indication: RENAL TRANSPLANT
     Dosage: UNK, UNKNOWN FREQ.
     Route: 065
  2. SIROLIMUS. [Concomitant]
     Active Substance: SIROLIMUS
     Indication: IMMUNOSUPPRESSION
     Dosage: 0.5 UNITS NOT REPORTED, ONCE DAILY
     Route: 065
     Dates: start: 20160806
  3. PREDNISOLONE. [Concomitant]
     Active Substance: PREDNISOLONE
     Indication: IMMUNOSUPPRESSION
     Route: 065
     Dates: start: 20160114
  4. TACROLIMUS. [Suspect]
     Active Substance: TACROLIMUS
     Indication: RENAL TRANSPLANT
     Dosage: UNK UNK, UNKNOWN FREQ.
     Route: 065
  5. TACROLIMUS. [Suspect]
     Active Substance: TACROLIMUS
     Indication: RENAL TRANSPLANT
     Dosage: 2 X 1 MG, UNKNOWN FREQ. 1.5 MG FROM 04-NOV-2016, 1.5 MG FROM 28-JUL-2016,1 MG 18-NOV-2016.
     Route: 065

REACTIONS (4)
  - Hypertension [Recovered/Resolved]
  - Coma [Unknown]
  - Basilar artery occlusion [Unknown]
  - Dysphagia [Unknown]

NARRATIVE: CASE EVENT DATE: 20161020
